FAERS Safety Report 6142215-0 (Version None)
Quarter: 2009Q2

REPORT INFORMATION
  Report Type: 
  Country: None (occurrence: None)
  Receive Date: 20090403
  Receipt Date: 20070924
  Transmission Date: 20091009
  Serious: Yes (Death, Other)
  Sender: FDA-Public Use
  Company Number: US-ASTRAZENECA-2006UW21675

PATIENT
  Age: 21230 Day
  Sex: Male
  Weight: 83.8 kg

DRUGS (23)
  1. SEROQUEL [Suspect]
     Indication: DEPRESSION
     Dosage: 25 - 400MG
     Route: 048
     Dates: start: 20020829
  2. SEROQUEL [Suspect]
     Indication: ANXIETY
     Dosage: 25 - 400MG
     Route: 048
     Dates: start: 20020829
  3. SEROQUEL [Suspect]
     Indication: INSOMNIA
     Dosage: 25 - 400MG
     Route: 048
     Dates: start: 20020829
  4. SEROQUEL [Suspect]
     Indication: ANGER
     Dosage: 25 - 400MG
     Route: 048
     Dates: start: 20020829
  5. SEROQUEL [Suspect]
     Indication: AGITATION
     Dosage: 25 - 400MG
     Route: 048
     Dates: start: 20020829
  6. SEROQUEL [Suspect]
     Indication: IRRITABILITY
     Dosage: 25 - 400MG
     Route: 048
     Dates: start: 20020829
  7. PROPRANOLOL [Concomitant]
  8. PROCHLORPERAZINE [Concomitant]
  9. GLYBURIDE [Concomitant]
  10. DOXAZOSIN MESYLATE [Concomitant]
  11. OMEPRAZOLE [Concomitant]
  12. AMITRIPTYLINE HCL [Concomitant]
  13. MIRTAZAPINE [Concomitant]
  14. ALPRAZOLAM [Concomitant]
  15. EFFEXOR [Concomitant]
  16. KLONOPIN [Concomitant]
  17. HYDROCODONE BITARTRATE [Concomitant]
  18. RABEPRAZOLE SODIUM [Concomitant]
  19. NAPROXEN [Concomitant]
  20. ETODOLAC [Concomitant]
  21. CELEXA [Concomitant]
  22. BENADRYL [Concomitant]
  23. GABAPENTIN [Concomitant]

REACTIONS (18)
  - ABDOMINAL PAIN LOWER [None]
  - CHEST PAIN [None]
  - CONFUSIONAL STATE [None]
  - CONJUNCTIVITIS ALLERGIC [None]
  - DEAFNESS [None]
  - DEATH [None]
  - DENTAL CARIES [None]
  - DIABETES MELLITUS [None]
  - DIZZINESS [None]
  - DRY MOUTH [None]
  - DYSPHAGIA [None]
  - HEADACHE [None]
  - LYMPHADENOPATHY [None]
  - MICTURITION URGENCY [None]
  - OSTEOARTHRITIS [None]
  - PTERYGIUM [None]
  - SEDATION [None]
  - SYNCOPE [None]
